FAERS Safety Report 4889921-3 (Version None)
Quarter: 2006Q1

REPORT INFORMATION
  Report Type: 
  Country: None (occurrence: None)
  Receive Date: 20060120
  Receipt Date: 20060106
  Transmission Date: 20060701
  Serious: Yes (Other)
  Sender: FDA-Public Use
  Company Number: DE-2005-027253

PATIENT
  Age: 58 Year
  Sex: Female

DRUGS (16)
  1. ULTRAVIST 370 [Suspect]
     Indication: COMPUTERISED TOMOGRAM THORAX
     Dosage: 100 ML, 1 DOSE, INTRAVENOUS
     Route: 042
     Dates: start: 20051216, end: 20051216
  2. CLEXANE   /GFR/(HEPARIN-FRACTION, SODIUM SALT) [Concomitant]
  3. NEORECORMON ^BOEHRINGER MANNHEIM^ (EPOETIN BETA) [Concomitant]
  4. FERLECIT (FERRIC SODIUM  GLUCONATE COMPLEX) [Concomitant]
  5. ASPIRIN [Concomitant]
  6. PANTOPRAZOLE SODIUM [Concomitant]
  7. ENALAPRIL MALEATE [Concomitant]
  8. PRAVASTATIN SODIUM [Concomitant]
  9. VIGANTOLETTEN ^BAYER^ [Concomitant]
  10. LORAZEPAM [Concomitant]
  11. DIGITOXIN TAB [Concomitant]
  12. NOVONORM (REPAGLINIDE) [Concomitant]
  13. DREISAVIT [Concomitant]
  14. CIPRAMIL  /NET/(CITALOPRAM  HYDROCHLORIDE) [Concomitant]
  15. DURAGESIC-100 [Concomitant]
  16. TRAMADOL HCL [Concomitant]

REACTIONS (5)
  - BRADYCARDIA [None]
  - CIRCULATORY COLLAPSE [None]
  - CYANOSIS [None]
  - DEPRESSED LEVEL OF CONSCIOUSNESS [None]
  - HYPOTENSION [None]
